FAERS Safety Report 24700517 (Version 1)
Quarter: 2024Q4

REPORT INFORMATION
  Report Type: Spontaneous
  Country: US (occurrence: US)
  Receive Date: 20241205
  Receipt Date: 20241205
  Transmission Date: 20250114
  Serious: No
  Sender: Harrow Health
  Company Number: US-IMP-2024001072

PATIENT
  Age: 70 Year
  Sex: Female

DRUGS (3)
  1. VEVYE [Suspect]
     Active Substance: CYCLOSPORINE
     Indication: Dry eye
     Route: 065
     Dates: start: 202403, end: 2024
  2. VEVYE [Suspect]
     Active Substance: CYCLOSPORINE
     Indication: Dry eye
     Route: 047
     Dates: start: 20241126, end: 202411
  3. WHOLE BLOOD [Concomitant]
     Active Substance: WHOLE BLOOD
     Indication: Product used for unknown indication
     Route: 065

REACTIONS (5)
  - Eye pain [Not Recovered/Not Resolved]
  - Instillation site irritation [Not Recovered/Not Resolved]
  - Condition aggravated [Unknown]
  - Drug ineffective [Unknown]
  - Product quality issue [Unknown]

NARRATIVE: CASE EVENT DATE: 20241126
